FAERS Safety Report 4669086-3 (Version None)
Quarter: 2005Q2

REPORT INFORMATION
  Report Type: 
  Country: None (occurrence: None)
  Receive Date: 20050519
  Receipt Date: 20050506
  Transmission Date: 20051028
  Serious: Yes (Other)
  Sender: FDA-Public Use
  Company Number: 2005037030

PATIENT
  Age: 50 Year
  Sex: Male
  Weight: 105 kg

DRUGS (7)
  1. CELEBREX [Suspect]
     Indication: OSTEOARTHRITIS
     Dosage: (200 MG, 2 IN 1 D), ORAL
     Route: 048
     Dates: start: 20010101, end: 20050106
  2. ASPIRIN [Concomitant]
  3. ATENOLOL [Concomitant]
  4. BENDROFLUAZIDE (BENDROFLUMETHIAZIDE) [Concomitant]
  5. GTN (GLYCERYL TRINITRATE) [Concomitant]
  6. ISOSORBIDE MONO MR (ISOSORBIDE MONONITRATE) [Concomitant]
  7. SIMVASTATIN [Concomitant]

REACTIONS (3)
  - ANGINA PECTORIS [None]
  - CORONARY ARTERY ATHEROSCLEROSIS [None]
  - MYOCARDIAL ISCHAEMIA [None]
